FAERS Safety Report 5794737-X (Version None)
Quarter: 2008Q2

REPORT INFORMATION
  Report Type: 
  Country: None (occurrence: None)
  Receive Date: 20080630
  Receipt Date: 20080617
  Transmission Date: 20081010
  Serious: Yes (Other)
  Sender: FDA-Public Use
  Company Number: US-AVENTIS-200813902US

PATIENT

DRUGS (5)
  1. LEFLUNOMIDE [Suspect]
  2. LEFLUNOMIDE [Suspect]
     Dosage: DOSE: 20 MG/D, TITRATED ON THE BASIS OF LEVELS
  3. TACROLIMUS [Suspect]
     Dosage: DOSE: UNK
  4. TACROLIMUS [Suspect]
     Dosage: DOSE QUANTITY: 5; DOSE UNIT: NANOGRAM PER MILLILITRE
  5. PREDNISON [Suspect]
     Dosage: DOSE: 5 TO 10; DOSE UNIT: MILLIGRAM PER DECILITRE

REACTIONS (9)
  - ANAEMIA [None]
  - BLOOD LACTATE DEHYDROGENASE [None]
  - HAEMOLYSIS [None]
  - HAPTOGLOBIN DECREASED [None]
  - OFF LABEL USE [None]
  - OVERDOSE [None]
  - PLATELET COUNT DECREASED [None]
  - RED BLOOD CELL ABNORMALITY [None]
  - RENAL TRANSPLANT [None]
